FAERS Safety Report 4631614-1 (Version None)
Quarter: 2005Q2

REPORT INFORMATION
  Report Type: 
  Country: None (occurrence: None)
  Receive Date: 20050407
  Receipt Date: 20050331
  Transmission Date: 20051028
  Serious: Yes (Death)
  Sender: FDA-Public Use
  Company Number: 2005SE01892

PATIENT
  Age: 49 Year
  Sex: Female

DRUGS (6)
  1. SEROQUEL [Suspect]
     Indication: SCHIZOPHRENIA
     Dosage: 600 MG DAILY PO
     Route: 048
     Dates: start: 20040201
  2. DISIPAL [Suspect]
     Dosage: 150 MG DAILY PO
     Route: 048
     Dates: start: 19990301
  3. RISPERDAL [Concomitant]
  4. XANOR [Concomitant]
  5. CERADROXIL [Concomitant]
  6. THERALEN [Concomitant]

REACTIONS (6)
  - BRONCHIAL INFECTION [None]
  - CONFUSIONAL STATE [None]
  - DISORIENTATION [None]
  - DRUG LEVEL INCREASED [None]
  - EYE INFECTION [None]
  - SUDDEN DEATH [None]
